FAERS Safety Report 25119679 (Version 1)
Quarter: 2025Q1

REPORT INFORMATION
  Report Type: Spontaneous
  Country: US (occurrence: None)
  Receive Date: 20250324
  Receipt Date: 20250324
  Transmission Date: 20250408
  Serious: Yes (Other)
  Sender: FDA-CTU
  Company Number: None

PATIENT
  Age: 37 Year
  Sex: Female

DRUGS (1)
  1. SKYRIZI [Suspect]
     Active Substance: RISANKIZUMAB-RZAA
     Indication: Psoriasis

REACTIONS (7)
  - Pregnancy [None]
  - Therapy interrupted [None]
  - Inappropriate schedule of product administration [None]
  - Product dose omission in error [None]
  - Exposure during pregnancy [None]
  - Maternal drugs affecting foetus [None]
  - Abortion spontaneous [None]

NARRATIVE: CASE EVENT DATE: 20250320
